FAERS Safety Report 13027327 (Version 1)
Quarter: 2016Q4

REPORT INFORMATION
  Report Type: Spontaneous
  Country: US (occurrence: US)
  Receive Date: 20161214
  Receipt Date: 20161214
  Transmission Date: 20170207
  Serious: No
  Sender: FDA-Public Use
  Company Number: US-PFIZER INC-2016568959

PATIENT
  Age: 75 Year
  Sex: Female

DRUGS (1)
  1. MEDROL [Suspect]
     Active Substance: METHYLPREDNISOLONE
     Dosage: UNK

REACTIONS (5)
  - Hyperhidrosis [Unknown]
  - Chest pain [Unknown]
  - Drug hypersensitivity [Unknown]
  - Headache [Unknown]
  - Visual impairment [Unknown]
